FAERS Safety Report 15551356 (Version 2)
Quarter: 2019Q1

REPORT INFORMATION
  Report Type: Other
  Country: CA (occurrence: CA)
  Receive Date: 20181025
  Receipt Date: 20190312
  Transmission Date: 20190417
  Serious: Yes (Hospitalization)
  Sender: FDA-Public Use
  Company Number: CA-GLENMARK PHARMACEUTICALS-2018GMK037926

PATIENT

DRUGS (1)
  1. GABAPENTIN. [Suspect]
     Active Substance: GABAPENTIN
     Indication: EPICONDYLITIS
     Dosage: 200 MG, OD
     Route: 048

REACTIONS (3)
  - Hypoaesthesia [Recovered/Resolved]
  - Myoclonus [Recovered/Resolved]
  - Tremor [Recovered/Resolved]
